FAERS Safety Report 8822932 (Version 1)
Quarter: 2012Q4

REPORT INFORMATION
  Report Type: 
  Country: MX (occurrence: MX)
  Receive Date: 20121003
  Receipt Date: 20121003
  Transmission Date: 20130627
  Serious: Yes (Other)
  Sender: FDA-Public Use
  Company Number: PHHY2012MX085690

PATIENT
  Sex: Male

DRUGS (1)
  1. EXELON PATCH [Suspect]
     Indication: DEMENTIA ALZHEIMER^S TYPE
     Dosage: 4.6 mg/ 24hrs
     Route: 062
     Dates: start: 201209

REACTIONS (3)
  - Osteitis deformans [Not Recovered/Not Resolved]
  - Osteolysis [Not Recovered/Not Resolved]
  - Hallucination, visual [Not Recovered/Not Resolved]
